FAERS Safety Report 9185914 (Version 1)
Quarter: 2013Q1

REPORT INFORMATION
  Report Type: Report from Study
  Country: US (occurrence: US)
  Receive Date: 20130325
  Receipt Date: 20130325
  Transmission Date: 20140127
  Serious: Yes (Hospitalization, Other)
  Sender: FDA-Public Use
  Company Number: US-ASTRAZENECA-2013SE17962

PATIENT
  Age: 68 Year
  Sex: Female

DRUGS (38)
  1. NEXIUM [Suspect]
     Indication: GASTROOESOPHAGEAL REFLUX DISEASE
     Dosage: 40 MG, DAILY, GENERIC
     Route: 048
     Dates: start: 20120618
  2. NEXIUM [Suspect]
     Indication: GASTROOESOPHAGEAL REFLUX DISEASE
     Route: 048
  3. FUROSEMIDE [Concomitant]
     Indication: OEDEMA
     Dosage: 20 MG DAILY AS REQUIRED
     Route: 048
     Dates: start: 20120618
  4. NITROSTAT [Concomitant]
     Indication: CHEST PAIN
     Dosage: 1 TABLET EVERY 5 MINUTES AS NEDDED, MAXIMUM OF 3 TABLETS IN 15 MINUTES
     Route: 060
     Dates: start: 20120618
  5. OXYGEN [Concomitant]
     Indication: CHRONIC OBSTRUCTIVE PULMONARY DISEASE
     Dosage: 2-4 L/MIN
     Route: 045
     Dates: start: 20120517
  6. THEOPHYLLINE [Concomitant]
     Indication: CHRONIC OBSTRUCTIVE PULMONARY DISEASE
     Route: 048
  7. SENNA S [Concomitant]
     Route: 048
     Dates: start: 20121024
  8. ACETAMINOPHEN [Concomitant]
     Indication: PAIN
     Dosage: 1 SUPPOSITORY PRN EVERY 6 HOURS
     Route: 054
     Dates: start: 20120627
  9. ACETAMINOPHEN [Concomitant]
     Indication: PYREXIA
     Dosage: 1 SUPPOSITORY PRN EVERY 6 HOURS
     Route: 054
     Dates: start: 20120627
  10. ALBUTEROL SULFATE [Concomitant]
     Indication: WHEEZING
     Dosage: 2 PUFFS 4 TIMES A DAY PRN
     Route: 055
     Dates: start: 20120618
  11. ALBUTEROL SULFATE [Concomitant]
     Indication: DYSPNOEA
     Dosage: 2 PUFFS 4 TIMES A DAY PRN
     Route: 055
     Dates: start: 20120618
  12. ATROPINE SULFATE [Concomitant]
     Indication: SECRETION GASTRIC ABSENT
     Dosage: 2 DROPS EVERY 4 HOURS PRN
     Route: 060
     Dates: start: 20120627
  13. BENADRYL [Concomitant]
     Indication: PRURITUS
     Dosage: EVERY 4 HOURS PRN
     Route: 048
     Dates: start: 20121023
  14. CLONAZEPAM [Concomitant]
     Indication: ANXIETY
     Route: 048
     Dates: start: 20121024
  15. CLONAZEPAM [Concomitant]
     Indication: SLEEP DISORDER
     Route: 048
     Dates: start: 20121024
  16. CLONAZEPAM [Concomitant]
     Indication: ANXIETY
     Route: 048
     Dates: start: 20120703
  17. CLONAZEPAM [Concomitant]
     Indication: SLEEP DISORDER
     Route: 048
     Dates: start: 20120703
  18. FLUTICASONE-SALEMETEROL [Concomitant]
     Indication: DYSPNOEA
     Route: 055
     Dates: start: 20121029
  19. GUAIFENESIN [Concomitant]
     Indication: COUGH
     Route: 048
     Dates: start: 20130131
  20. HALOPERIDOL LACTATE [Concomitant]
     Indication: AGITATION
     Dosage: 1 MG EVERY 6 HOURS PRN
     Route: 060
     Dates: start: 20120627
  21. IPRATROPTIUM ALBUTEROL [Concomitant]
     Indication: DYSPNOEA
     Dosage: 3 ML PER HOUR PRN
     Route: 055
     Dates: start: 20121022
  22. IPRATROPTIUM ALBUTEROL [Concomitant]
     Indication: WHEEZING
     Dosage: 3 ML PER HOUR PRN
     Route: 055
     Dates: start: 20121022
  23. IPRATROPTIUM ALBUTEROL [Concomitant]
     Indication: DYSPNOEA
     Dosage: 3 ML EVERY 6 HOURS
     Route: 055
     Dates: start: 20121022
  24. IPRATROPTIUM ALBUTEROL [Concomitant]
     Indication: WHEEZING
     Dosage: 3 ML EVERY 6 HOURS
     Route: 055
     Dates: start: 20121022
  25. LIDOCAINE [Concomitant]
     Indication: MUSCULOSKELETAL CHEST PAIN
     Dosage: 1 PATCH, REMOVE AT NIGHT
     Dates: start: 20121023
  26. LIDOCAINE [Concomitant]
     Indication: NECK PAIN
     Dosage: 1 PATCH, REMOVE AT NIGHT
     Dates: start: 20121023
  27. LIDOCAINE [Concomitant]
     Indication: BACK PAIN
     Dosage: 1 PATCH, REMOVE AT NIGHT
     Dates: start: 20121023
  28. LORAZEPAM [Concomitant]
     Indication: ANXIETY
     Dosage: 1 MG EVERY 4 HOURS PRN
     Route: 048
     Dates: start: 20120809
  29. MILK OF MAGNESIA CONCENTRATE [Concomitant]
     Indication: CONSTIPATION
     Dosage: 30 ML DAILY PRN
     Route: 048
     Dates: start: 20121025
  30. NORTRIPTYLINE [Concomitant]
     Indication: SLEEP DISORDER
     Route: 048
     Dates: start: 20121025
  31. OXYCODONE HCL [Concomitant]
     Indication: PAIN
     Route: 048
     Dates: start: 20121022
  32. OXYCODONE HCL [Concomitant]
     Indication: DYSPNOEA
     Route: 048
     Dates: start: 20121022
  33. OXYCODONE HCL [Concomitant]
     Indication: PAIN
     Dosage: 5 MG EVERY HOUR PRN
     Route: 048
     Dates: start: 20121022
  34. OXYCODONE HCL [Concomitant]
     Indication: DYSPNOEA
     Dosage: 5 MG EVERY HOUR PRN
     Route: 048
     Dates: start: 20121022
  35. PROCHLORPERAZINE [Concomitant]
     Indication: NAUSEA
     Dosage: 1 SUPPOSITORY PRN EVERY 12 HOURS
     Route: 054
     Dates: start: 20120627
  36. PROCHLORPERAZINE [Concomitant]
     Indication: VOMITING
     Dosage: 1 SUPPOSITORY PRN EVERY 12 HOURS
     Route: 054
     Dates: start: 20120627
  37. PROCHLORPERAZINE MALEATE [Concomitant]
     Indication: NAUSEA
     Dosage: 10 MG EVERY 6 HOURS PRN
     Route: 060
     Dates: start: 20120627
  38. PROCHLORPERAZINE MALEATE [Concomitant]
     Indication: VOMITING
     Dosage: 10 MG EVERY 6 HOURS PRN
     Route: 060
     Dates: start: 20120627

REACTIONS (20)
  - Major depression [Unknown]
  - Malaise [Unknown]
  - Chronic obstructive pulmonary disease [Unknown]
  - Anxiety [Unknown]
  - Fatigue [Unknown]
  - Dyspnoea [Unknown]
  - Pain [Unknown]
  - Constipation [Unknown]
  - Anxiety [Unknown]
  - Pain [Unknown]
  - Pyrexia [Unknown]
  - Secretion gastric absent [Unknown]
  - Cough [Unknown]
  - Wheezing [Unknown]
  - Musculoskeletal chest pain [Unknown]
  - Neck pain [Unknown]
  - Nausea [Unknown]
  - Vomiting [Unknown]
  - Pruritus [Unknown]
  - Agitation [Unknown]
